FAERS Safety Report 23777798 (Version 1)
Quarter: 2024Q2

REPORT INFORMATION
  Report Type: Spontaneous
  Country: US (occurrence: US)
  Receive Date: 20240424
  Receipt Date: 20240424
  Transmission Date: 20240716
  Serious: Yes (Life-Threatening, Other)
  Sender: FDA-Public Use
  Company Number: US-PFIZER INC-PV202400052748

PATIENT
  Age: 46 Year
  Sex: Female

DRUGS (6)
  1. CEFEPIME HYDROCHLORIDE [Suspect]
     Active Substance: CEFEPIME HYDROCHLORIDE
     Indication: Prophylaxis
     Dosage: 2 G, 3X/DAY (EVERY 8 HR) (PREOPERATIVELY)
  2. CEFEPIME HYDROCHLORIDE [Suspect]
     Active Substance: CEFEPIME HYDROCHLORIDE
     Dosage: 2 G, 3X/DAY (EVERY 8 HR), REDOSED TWICE INTRAOPERATIVELY
  3. CEFEPIME HYDROCHLORIDE [Suspect]
     Active Substance: CEFEPIME HYDROCHLORIDE
     Dosage: 2 G, 3X/DAY (EVERY 8 HR), REDOSED TWICE INTRAOPERATIVELY
  4. CEFEPIME HYDROCHLORIDE [Suspect]
     Active Substance: CEFEPIME HYDROCHLORIDE
     Dosage: UNK, ADMINISTERED AT 6 HOURS POSTOPERATIVELY
  5. CEFEPIME HYDROCHLORIDE [Suspect]
     Active Substance: CEFEPIME HYDROCHLORIDE
     Dosage: UNK, ADMINISTERED AT 10 HOURS POSTOPERATIVELY
  6. CEFEPIME HYDROCHLORIDE [Suspect]
     Active Substance: CEFEPIME HYDROCHLORIDE
     Dosage: 1 G, 2X/DAY (EVERY 12 HR)

REACTIONS (5)
  - Thrombosis [Unknown]
  - Drug level increased [Unknown]
  - Urine output decreased [Unknown]
  - Graft loss [Unknown]
  - Off label use [Unknown]
